FAERS Safety Report 12467484 (Version 1)
Quarter: 2016Q2

REPORT INFORMATION
  Report Type: Spontaneous
  Country: US (occurrence: None)
  Receive Date: 20160614
  Receipt Date: 20160614
  Transmission Date: 20160815
  Serious: Yes (Disabling)
  Sender: FDA-Public Use
  Company Number: None

PATIENT
  Age: 65 Year
  Sex: Female
  Weight: 68.49 kg

DRUGS (11)
  1. NATURAL DESSICATED THYROID [Concomitant]
  2. MAGNESIUM [Concomitant]
     Active Substance: MAGNESIUM
  3. LIOTHYRONINE, 25 MCG [Suspect]
     Active Substance: LIOTHYRONINE
     Indication: HYPOTHYROIDISM
     Route: 048
     Dates: start: 20160606, end: 20160608
  4. OXYBUTNIN [Concomitant]
  5. LIOTHYRONINE [Concomitant]
     Active Substance: LIOTHYRONINE
  6. VITAMIN B COMPLEX [Concomitant]
     Active Substance: CYANOCOBALAMIN\DEXPANTHENOL\NIACINAMIDE\PYRIDOXINE HYDROCHLORIDE\RIBOFLAVIN 5^-PHOSPHATE SODIUM\THIAMINE HYDROCHLORIDE\VITAMIN B COMPLEX
  7. VITAMIN B12 [Concomitant]
     Active Substance: CYANOCOBALAMIN
  8. PROPRANOLOL [Concomitant]
     Active Substance: PROPRANOLOL\PROPRANOLOL HYDROCHLORIDE
  9. HRT [Concomitant]
     Active Substance: UNSPECIFIED INGREDIENT
  10. MULTI VITAMIN [Concomitant]
     Active Substance: VITAMINS
  11. IODINE. [Concomitant]
     Active Substance: IODINE

REACTIONS (2)
  - Hypoglycaemia [None]
  - Tremor [None]

NARRATIVE: CASE EVENT DATE: 20160606
